FAERS Safety Report 19869300 (Version 2)
Quarter: 2021Q4

REPORT INFORMATION
  Report Type: Report from Study
  Country: US (occurrence: US)
  Receive Date: 20210923
  Receipt Date: 20211223
  Transmission Date: 20220303
  Serious: No
  Sender: FDA-Public Use
  Company Number: US-AMGEN-USASP2021145502

PATIENT
  Age: 25 Year
  Sex: Female

DRUGS (7)
  1. OTEZLA [Suspect]
     Active Substance: APREMILAST
     Indication: Psoriatic arthropathy
     Dosage: 30 MILLIGRAM, BID
     Route: 048
     Dates: start: 2020
  2. OTEZLA [Suspect]
     Active Substance: APREMILAST
     Dosage: 30 MILLIGRAM, BID
     Route: 048
  3. OTEZLA [Suspect]
     Active Substance: APREMILAST
     Dosage: 50 MILLIGRAM
     Route: 048
     Dates: end: 202108
  4. OTEZLA [Suspect]
     Active Substance: APREMILAST
     Dosage: 30 MILLIGRAM, QD
     Route: 048
     Dates: start: 202111
  5. LEVALBUTEROL [Suspect]
     Active Substance: LEVALBUTEROL
     Indication: Product used for unknown indication
     Dosage: UNK
     Route: 065
  6. PANTOPRAZOLE [Concomitant]
     Active Substance: PANTOPRAZOLE
     Dosage: UNK
  7. COVID-19 VACCINE [Concomitant]
     Dosage: UNK

REACTIONS (11)
  - Costochondritis [Unknown]
  - Ear discomfort [Recovered/Resolved]
  - Psoriasis [Unknown]
  - Nausea [Unknown]
  - Sinus headache [Unknown]
  - Gastrooesophageal reflux disease [Unknown]
  - Heart rate increased [Unknown]
  - Vomiting [Unknown]
  - Off label use [Unknown]
  - Paranasal sinus discomfort [Unknown]
  - Wrong technique in product usage process [Unknown]

NARRATIVE: CASE EVENT DATE: 20210901
